FAERS Safety Report 6502386-0 (Version None)
Quarter: 2009Q4

REPORT INFORMATION
  Report Type: 
  Country: None (occurrence: None)
  Receive Date: 20091216
  Receipt Date: 20091208
  Transmission Date: 20100525
  Serious: No
  Sender: FDA-Public Use
  Company Number: US-ABBOTT-09P-163-0613960-00

PATIENT
  Sex: Female
  Weight: 66.738 kg

DRUGS (3)
  1. TRILIPIX [Suspect]
     Indication: BLOOD TRIGLYCERIDES INCREASED
     Dates: start: 20090601
  2. DILTIAZEM HYDROCHLORIDE [Concomitant]
     Indication: DRUG USE FOR UNKNOWN INDICATION
  3. ACTONEL PLUS CALCIUM [Concomitant]
     Indication: OSTEOPOROSIS

REACTIONS (1)
  - MUSCLE SPASMS [None]
